FAERS Safety Report 25786911 (Version 1)
Quarter: 2025Q3

REPORT INFORMATION
  Report Type: Spontaneous
  Country: PR (occurrence: PR)
  Receive Date: 20250910
  Receipt Date: 20250910
  Transmission Date: 20251020
  Serious: No
  Sender: ANI
  Company Number: PR-ANIPHARMA-2025-PR-000011

PATIENT
  Age: 56 Year
  Sex: Female
  Weight: 58.97 kg

DRUGS (4)
  1. CORTICOTROPIN [Suspect]
     Active Substance: CORTICOTROPIN
     Indication: Multiple sclerosis
     Route: 058
     Dates: start: 20240516
  2. BACLOFEN [Concomitant]
     Active Substance: BACLOFEN
     Route: 048
  3. NAPROXEN [Concomitant]
     Active Substance: NAPROXEN
     Route: 048
  4. Tysabri Concentrate [Concomitant]
     Route: 042

REACTIONS (1)
  - Sleep disorder [Unknown]

NARRATIVE: CASE EVENT DATE: 20250304
